FAERS Safety Report 23713102 (Version 1)
Quarter: 2024Q2

REPORT INFORMATION
  Report Type: Spontaneous
  Country: AU (occurrence: AU)
  Receive Date: 20240405
  Receipt Date: 20240405
  Transmission Date: 20240716
  Serious: Yes (Other)
  Sender: FDA-Public Use
  Company Number: AU-BAXTER-2024BAX015967

PATIENT
  Sex: Female

DRUGS (22)
  1. DOXORUBICIN [Suspect]
     Active Substance: DOXORUBICIN
     Indication: Chronic lymphocytic leukaemia
     Dosage: UNK, SIXTH LINE SYSTEMIC TREATMENT
     Route: 065
     Dates: start: 20220501, end: 20220704
  2. CYCLOPHOSPHAMIDE [Suspect]
     Active Substance: CYCLOPHOSPHAMIDE
     Indication: Chronic lymphocytic leukaemia
     Dosage: UNK, FIRST LINE SYSTEMIC TREATMENT
     Route: 065
     Dates: start: 20080301, end: 20080901
  3. CYCLOPHOSPHAMIDE [Suspect]
     Active Substance: CYCLOPHOSPHAMIDE
     Dosage: UNK, SECOND LINE SYSTEMIC TREATMENT
     Route: 065
     Dates: start: 20090901, end: 20091201
  4. CYCLOPHOSPHAMIDE [Suspect]
     Active Substance: CYCLOPHOSPHAMIDE
     Dosage: UNK, SIXTH LINE SYSTEMIC TREATMENT
     Route: 065
     Dates: start: 20220501, end: 20220704
  5. ACALABRUTINIB [Suspect]
     Active Substance: ACALABRUTINIB
     Dosage: UNK
     Route: 065
     Dates: start: 20220816, end: 20221012
  6. ETOPOSIDE [Suspect]
     Active Substance: ETOPOSIDE
     Indication: Chronic lymphocytic leukaemia
     Dosage: UNK, SIXTH LINE SYSTEMIC TREATMENT
     Route: 065
     Dates: start: 20220501, end: 20220704
  7. FLUDARABINE PHOSPHATE [Suspect]
     Active Substance: FLUDARABINE PHOSPHATE
     Indication: Chronic lymphocytic leukaemia
     Dosage: UNK, FIRST LINE SYSTEMIC TREATMENT
     Route: 065
     Dates: start: 20080301, end: 20080901
  8. FLUDARABINE PHOSPHATE [Suspect]
     Active Substance: FLUDARABINE PHOSPHATE
     Dosage: UNK, SECOND LINE SYSTEMIC TREATMENT
     Route: 065
     Dates: start: 20090901, end: 20091201
  9. IBRUTINIB [Suspect]
     Active Substance: IBRUTINIB
     Indication: Chronic lymphocytic leukaemia
     Dosage: UNK, FOURTH LINE SYSTEMIC TREATMENT
     Route: 065
     Dates: start: 20130401, end: 20180301
  10. LENALIDOMIDE [Suspect]
     Active Substance: LENALIDOMIDE
     Indication: Chronic lymphocytic leukaemia
     Dosage: UNK, THIRD LINE SYSTEMIC TREATMENT
     Route: 065
     Dates: start: 20100101, end: 20130301
  11. PIRTOBRUTINIB [Suspect]
     Active Substance: PIRTOBRUTINIB
     Indication: Chronic lymphocytic leukaemia
     Dosage: UNK, FIFTH LINE SYSTEMIC TREATMENT
     Route: 065
     Dates: start: 20180401, end: 20220401
  12. PREDNISOLONE [Suspect]
     Active Substance: PREDNISOLONE
     Indication: Chronic lymphocytic leukaemia
     Dosage: UNK, SIXTH LINE SYSTEMIC TREATMENT
     Route: 065
     Dates: start: 20220501, end: 20220704
  13. RITUXIMAB [Suspect]
     Active Substance: RITUXIMAB
     Indication: Chronic lymphocytic leukaemia
     Dosage: UNK, SECOND LINE SYSTEMIC TREATMENT
     Route: 065
     Dates: start: 20090901, end: 20091201
  14. RITUXIMAB [Suspect]
     Active Substance: RITUXIMAB
     Dosage: UNK, SIXTH LINE SYSTEMIC TREATMENT
     Route: 065
     Dates: start: 20220501, end: 20220704
  15. VENETOCLAX [Suspect]
     Active Substance: VENETOCLAX
     Indication: Chronic lymphocytic leukaemia
     Dosage: UNK, SIXTH LINE SYSTEMIC TREATMENT
     Route: 065
     Dates: start: 20220501, end: 20220704
  16. VINCRISTINE SULFATE [Suspect]
     Active Substance: VINCRISTINE SULFATE
     Indication: Chronic lymphocytic leukaemia
     Dosage: UNK, SIXTH LINE SYSTEMIC TREATMENT
     Route: 065
     Dates: start: 20220501, end: 20220704
  17. ALLOPURINOL [Concomitant]
     Active Substance: ALLOPURINOL
     Dosage: UNK
     Route: 065
  18. DEXAMETHASONE [Concomitant]
     Active Substance: DEXAMETHASONE
     Indication: Lymphoma
     Dosage: UNK
     Route: 065
  19. FLUCONAZOLE [Concomitant]
     Active Substance: FLUCONAZOLE
     Dosage: UNK
     Route: 065
  20. OXYCODONE [Concomitant]
     Active Substance: OXYCODONE\OXYCODONE HYDROCHLORIDE
     Dosage: UNK
     Route: 065
  21. TEMAZEPAM [Concomitant]
     Active Substance: TEMAZEPAM
     Dosage: UNK
     Route: 065
  22. NALOXONE HYDROCHLORIDE\OXYCODONE HYDROCHLORIDE [Concomitant]
     Active Substance: NALOXONE HYDROCHLORIDE\OXYCODONE HYDROCHLORIDE
     Dosage: UNK
     Route: 065

REACTIONS (1)
  - Disease progression [Unknown]
